FAERS Safety Report 15414881 (Version 1)
Quarter: 2018Q3

REPORT INFORMATION
  Report Type: Report from Study
  Country: CN (occurrence: CN)
  Receive Date: 20180921
  Receipt Date: 20180921
  Transmission Date: 20181010
  Serious: Yes (Other)
  Sender: FDA-Public Use
  Company Number: CN-ELI_LILLY_AND_COMPANY-CN201809003040

PATIENT
  Age: 66 Year
  Sex: Female

DRUGS (1)
  1. CETUXIMAB. [Suspect]
     Active Substance: CETUXIMAB
     Indication: COLON CANCER
     Dosage: 500 MG/M2, ONCE IN TWO WEEKS ? 800 MG (8 VIALS OF 100 MG/VIAL)
     Route: 065
     Dates: start: 20180124

REACTIONS (5)
  - Rash erythematous [Recovered/Resolved]
  - Skin ulcer [Recovered/Resolved]
  - Skin haemorrhage [Unknown]
  - Skin infection [Unknown]
  - Off label use [Unknown]

NARRATIVE: CASE EVENT DATE: 201808
